FAERS Safety Report 6045310-X (Version None)
Quarter: 2009Q1

REPORT INFORMATION
  Report Type: 
  Country: None (occurrence: None)
  Receive Date: 20090121
  Receipt Date: 20090113
  Transmission Date: 20090719
  Serious: Yes (Hospitalization)
  Sender: FDA-Public Use
  Company Number: PHBS2009HR00494

PATIENT
  Sex: Female

DRUGS (3)
  1. CYCLOSPORINE [Suspect]
     Indication: RENAL TRANSPLANT
  2. MYCOPHENOLATE MOFETIL [Suspect]
     Indication: RENAL TRANSPLANT
     Dosage: 1 G, BID
  3. STEROIDS NOS [Suspect]
     Indication: RENAL TRANSPLANT

REACTIONS (7)
  - DIALYSIS [None]
  - DYSLIPIDAEMIA [None]
  - EPSTEIN-BARR VIRUS ASSOCIATED LYMPHOPROLIFERATIVE DISORDER [None]
  - LYMPHOCELE [None]
  - POST PROCEDURAL HAEMORRHAGE [None]
  - REMOVAL OF RENAL TRANSPLANT [None]
  - WOUND DRAINAGE [None]
